FAERS Safety Report 15066044 (Version 1)
Quarter: 2018Q3

REPORT INFORMATION
  Report Type: Spontaneous
  Country: BE (occurrence: BE)
  Receive Date: 20180626
  Receipt Date: 20180626
  Transmission Date: 20181010
  Serious: Yes (Other)
  Sender: FDA-Public Use
  Company Number: BE-LUNDBECK-DKLU2050682

PATIENT
  Age: 1 Year
  Sex: Female

DRUGS (6)
  1. SABRIL [Suspect]
     Active Substance: VIGABATRIN
     Indication: INFANTILE SPASMS
     Route: 048
     Dates: start: 20180514
  2. D?CURE [Concomitant]
     Active Substance: CHOLECALCIFEROL
     Indication: PRODUCT USED FOR UNKNOWN INDICATION
     Route: 065
     Dates: start: 20170603
  3. OMEPRAZOLE 1?A PHARMA [Concomitant]
     Indication: PRODUCT USED FOR UNKNOWN INDICATION
     Route: 065
     Dates: start: 20180516
  4. SABRIL [Suspect]
     Active Substance: VIGABATRIN
     Route: 048
  5. SABRIL [Suspect]
     Active Substance: VIGABATRIN
     Route: 048
     Dates: start: 20180515
  6. SYNACTHEN DEPOT [Suspect]
     Active Substance: COSYNTROPIN HEXAACETATE
     Indication: INFANTILE SPASMS
     Route: 030
     Dates: start: 20180515

REACTIONS (3)
  - Hypothermia [Unknown]
  - Hypotonia [Unknown]
  - Sedation [Unknown]

NARRATIVE: CASE EVENT DATE: 20180516
